FAERS Safety Report 12906862 (Version 4)
Quarter: 2017Q3

REPORT INFORMATION
  Report Type: Spontaneous
  Country: CH (occurrence: CH)
  Receive Date: 20161103
  Receipt Date: 20170905
  Transmission Date: 20171127
  Serious: Yes (Life-Threatening, Hospitalization, Other)
  Sender: FDA-Public Use
  Company Number: CH-BAYER-2016-209486

PATIENT
  Age: 39 Year
  Sex: Female
  Weight: 68 kg

DRUGS (1)
  1. MIRENA [Suspect]
     Active Substance: LEVONORGESTREL
     Indication: CONTRACEPTION
     Dosage: 20 MCG/24HR, CONT
     Route: 015
     Dates: start: 20160914, end: 20161020

REACTIONS (6)
  - Intracranial venous sinus thrombosis [Recovered/Resolved]
  - Epilepsy [Recovered/Resolved]
  - Dyspnoea [Recovered/Resolved]
  - Subarachnoid haemorrhage [Recovered/Resolved]
  - Pulmonary embolism [Recovered/Resolved]
  - Headache [Recovered/Resolved]

NARRATIVE: CASE EVENT DATE: 20161008
